FAERS Safety Report 5608045-0 (Version None)
Quarter: 2008Q1

REPORT INFORMATION
  Report Type: 
  Country: None (occurrence: None)
  Receive Date: 20080128
  Receipt Date: 20080128
  Transmission Date: 20080703
  Serious: No
  Sender: FDA-Public Use
  Company Number: None

PATIENT
  Sex: Female
  Weight: 106.5953 kg

DRUGS (1)
  1. ZETIA [Suspect]
     Indication: BLOOD CHOLESTEROL INCREASED
     Dosage: 1 TABLET---10MG ONCE A DAY PO
     Route: 048
     Dates: start: 20071129, end: 20080103

REACTIONS (3)
  - INSOMNIA [None]
  - SWELLING [None]
  - WEIGHT INCREASED [None]
